FAERS Safety Report 4929436-7 (Version None)
Quarter: 2006Q1

REPORT INFORMATION
  Report Type: 
  Country: None (occurrence: None)
  Receive Date: 20060224
  Receipt Date: 20060214
  Transmission Date: 20060701
  Serious: Yes (Other)
  Sender: FDA-Public Use
  Company Number: 2006018586

PATIENT
  Age: 52 Year
  Sex: Female

DRUGS (10)
  1. SULFASALAZINE [Suspect]
     Indication: ILL-DEFINED DISORDER
     Dosage: (250 MG), ORAL
     Route: 048
  2. BACLOFEN [Suspect]
     Indication: MUSCLE SPASTICITY
     Dosage: ORAL
     Route: 048
  3. DITROPAN [Suspect]
     Indication: MICTURITION URGENCY
     Dosage: ORAL
     Route: 048
  4. DITROPAN [Suspect]
     Indication: URINARY INCONTINENCE
     Dosage: ORAL
     Route: 048
  5. DOSULEPIN (DOSULEPIN) [Suspect]
     Indication: SEDATION
     Dosage: ORAL
     Route: 048
  6. ALL OTHER THERAPEUTIC PRODUCTS (ALL OTHER THERAPEUTIC PRODUCTS) [Concomitant]
  7. PHENOBARBITAL TAB [Concomitant]
  8. ACETAMINOPHEN [Concomitant]
  9. DIAZEPAM [Concomitant]
  10. CO-CARELDOPA (CARBIDOPA, LEVODOPA) [Concomitant]

REACTIONS (6)
  - ABDOMINAL DISTENSION [None]
  - BEDRIDDEN [None]
  - CEREBROVASCULAR ACCIDENT [None]
  - MICTURITION URGENCY [None]
  - MUSCLE SPASMS [None]
  - URINARY INCONTINENCE [None]
